FAERS Safety Report 14314605 (Version 1)
Quarter: 2017Q4

REPORT INFORMATION
  Report Type: Spontaneous
  Country: US (occurrence: US)
  Receive Date: 20171221
  Receipt Date: 20171221
  Transmission Date: 20180321
  Serious: Yes (Hospitalization)
  Sender: FDA-Public Use
  Company Number: None

PATIENT
  Age: 53 Year
  Sex: Female

DRUGS (17)
  1. SENEXON-S [Concomitant]
     Active Substance: DOCUSATE SODIUM\SENNOSIDES A AND B
  2. VITAMIN D [Concomitant]
     Active Substance: CHOLECALCIFEROL
  3. FOLIC ACID. [Concomitant]
     Active Substance: FOLIC ACID
  4. TIZANIDINE. [Concomitant]
     Active Substance: TIZANIDINE
  5. BYDUREON [Concomitant]
     Active Substance: EXENATIDE
  6. FARXIGA [Concomitant]
     Active Substance: DAPAGLIFLOZIN PROPANEDIOL
  7. LEVOTHYROXIN [Concomitant]
     Active Substance: LEVOTHYROXINE
  8. CLONAZEPAM. [Concomitant]
     Active Substance: CLONAZEPAM
  9. METHOTREXATE. [Concomitant]
     Active Substance: METHOTREXATE
  10. METFORMIN [Concomitant]
     Active Substance: METFORMIN HYDROCHLORIDE
  11. MONTELUCAST [Concomitant]
     Active Substance: MONTELUKAST SODIUM
  12. COSENTYX [Suspect]
     Active Substance: SECUKINUMAB
     Indication: PSORIATIC ARTHROPATHY
     Dosage: ?          OTHER FREQUENCY:Q4W;?
     Route: 058
     Dates: start: 20160407
  13. DESVENLAFAX [Concomitant]
  14. CLONIDINE. [Concomitant]
     Active Substance: CLONIDINE
  15. ONETOUCH MIS LANTUS [Concomitant]
  16. HYDRO/APAP [Concomitant]
     Active Substance: ACETAMINOPHEN\HYDROCODONE
  17. ENALAPRIL [Concomitant]
     Active Substance: ENALAPRIL

REACTIONS (2)
  - Fracture [None]
  - Fall [None]

NARRATIVE: CASE EVENT DATE: 20171101
